FAERS Safety Report 5507291-4 (Version None)
Quarter: 2007Q4

REPORT INFORMATION
  Report Type: 
  Country: None (occurrence: None)
  Receive Date: 20071106
  Receipt Date: 20071026
  Transmission Date: 20080405
  Serious: Yes (Other)
  Sender: FDA-Public Use
  Company Number: PHBS2007BR18198

PATIENT
  Age: 70 Year
  Sex: Male
  Weight: 86 kg

DRUGS (7)
  1. TEGRETOL [Suspect]
     Indication: CONVULSION
     Dosage: 2 DF, UNK
     Route: 048
  2. PURAN T4 [Concomitant]
     Indication: HYPOTHYROIDISM
  3. METFORMIN [Concomitant]
     Indication: DIABETES MELLITUS
  4. LASIX [Concomitant]
     Indication: DIURETIC THERAPY
     Dosage: 1 DF, QD
  5. CONCOR [Concomitant]
     Indication: CARDIAC DISORDER
     Dosage: 2.5 MG, QD
     Route: 048
  6. TORLOSE [Concomitant]
     Indication: CARDIAC DISORDER
     Dosage: 1 DF, QD
     Route: 048
  7. INSULIN [Concomitant]
     Indication: DIABETES MELLITUS
     Dosage: 40 IU/DAY

REACTIONS (3)
  - NEPHRECTOMY [None]
  - PITUITARY TUMOUR [None]
  - RENAL NEOPLASM [None]
